FAERS Safety Report 25428442 (Version 2)
Quarter: 2025Q3

REPORT INFORMATION
  Report Type: Spontaneous
  Country: US (occurrence: US)
  Receive Date: 20250612
  Receipt Date: 20250927
  Transmission Date: 20251020
  Serious: No
  Sender: SANOFI AVENTIS
  Company Number: US-SA-2025SA166207

PATIENT
  Age: 57 Year
  Sex: Female
  Weight: 49.09 kg

DRUGS (2)
  1. DUPIXENT [Suspect]
     Active Substance: DUPILUMAB
     Indication: Dermatitis atopic
     Route: 058
  2. DUPIXENT [Suspect]
     Active Substance: DUPILUMAB
     Indication: Illness
     Dosage: 300 MG, QOW
     Route: 058

REACTIONS (5)
  - Pustule [Unknown]
  - Rebound atopic dermatitis [Unknown]
  - Headache [Unknown]
  - Oropharyngeal pain [Unknown]
  - Eczema [Unknown]

NARRATIVE: CASE EVENT DATE: 20250901
